FAERS Safety Report 4849131-2 (Version None)
Quarter: 2005Q4

REPORT INFORMATION
  Report Type: 
  Country: None (occurrence: None)
  Receive Date: 20051209
  Receipt Date: 20051205
  Transmission Date: 20060501
  Serious: Yes (Hospitalization)
  Sender: FDA-Public Use
  Company Number: IT-GLAXOSMITHKLINE-B0403118A

PATIENT
  Age: 27 Year
  Sex: Male

DRUGS (4)
  1. LAMOTRIGINE [Suspect]
     Dosage: 350MG PER DAY
     Route: 048
     Dates: start: 20030101, end: 20051124
  2. VALPROATE SODIUM [Suspect]
     Dosage: 2500MG PER DAY
     Route: 048
     Dates: start: 19800101, end: 20051124
  3. DIAZEPAM [Concomitant]
     Dosage: 15MG PER DAY
     Route: 048
  4. NITRAZEPAM [Concomitant]
     Dosage: 5MG PER DAY
     Route: 048
     Dates: start: 20030101, end: 20051024

REACTIONS (1)
  - BLOOD AMYLASE INCREASED [None]
